FAERS Safety Report 4831990-0 (Version None)
Quarter: 2005Q4

REPORT INFORMATION
  Report Type: 
  Country: None (occurrence: None)
  Receive Date: 20051116
  Receipt Date: 20051012
  Transmission Date: 20060501
  Serious: Yes (Hospitalization, Other)
  Sender: FDA-Public Use
  Company Number: PHBS2004JP15037

PATIENT
  Age: 72 Year
  Sex: Male
  Weight: 51 kg

DRUGS (4)
  1. RIMACTANE [Suspect]
     Indication: PULMONARY TUBERCULOSIS
     Dosage: ORAL
     Route: 048
     Dates: start: 20040618
  2. ISONIAZID [Suspect]
     Indication: PULMONARY TUBERCULOSIS
     Dates: start: 20040618
  3. STREPTOMYCIN SULFATE (STREPTOMYCIN SULFATE) [Concomitant]
  4. ETHAMBUTOL HCL [Suspect]
     Indication: PULMONARY TUBERCULOSIS
     Dates: start: 20040729

REACTIONS (5)
  - DRUG RESISTANCE [None]
  - HAEMATURIA [None]
  - HAEMODIALYSIS [None]
  - NEPHRITIS INTERSTITIAL [None]
  - RENAL FAILURE ACUTE [None]
